FAERS Safety Report 8610779-0 (Version None)
Quarter: 2012Q3

REPORT INFORMATION
  Report Type: 
  Country: None (occurrence: None)
  Receive Date: 20120822
  Receipt Date: 20120817
  Transmission Date: 20120928
  Serious: Yes (Hospitalization)
  Sender: FDA-Public Use
  Company Number: JP-JNJFOC-20120512665

PATIENT
  Sex: Female
  Weight: 46 kg

DRUGS (18)
  1. VITAMIN B12 [Concomitant]
     Indication: NEUROPATHY PERIPHERAL
     Route: 048
  2. COLONEL [Concomitant]
     Route: 048
     Dates: start: 20120414
  3. FOLIC ACID [Concomitant]
     Route: 048
     Dates: start: 20120612
  4. GALANTAMINE HYDROBROMIDE [Suspect]
     Indication: DEMENTIA ALZHEIMER'S TYPE
     Route: 048
     Dates: start: 20120507, end: 20120521
  5. CALBLOCK [Concomitant]
     Indication: HYPERTENSION
     Route: 048
  6. MIYA BM [Concomitant]
     Indication: CONSTIPATION
     Route: 048
  7. GALANTAMINE HYDROBROMIDE [Suspect]
     Route: 048
     Dates: start: 20120302, end: 20120506
  8. UNKNOWN MEDICATION [Concomitant]
     Indication: HYPERLIPIDAEMIA
     Route: 048
     Dates: start: 20120327, end: 20120327
  9. MUCOSTA [Concomitant]
     Indication: PROPHYLAXIS
     Route: 048
  10. GALANTAMINE HYDROBROMIDE [Suspect]
     Route: 048
     Dates: start: 20120423, end: 20120502
  11. LEVOTHYROXINE SODIUM [Concomitant]
     Indication: HYPOTHYROIDISM
     Route: 048
  12. FERROUS CITRATE [Concomitant]
     Indication: IRON DEFICIENCY ANAEMIA
     Route: 048
  13. COLONEL [Concomitant]
     Indication: CONSTIPATION
     Route: 048
     Dates: end: 20120413
  14. GALANTAMINE HYDROBROMIDE [Suspect]
     Route: 048
     Dates: start: 20120327, end: 20120423
  15. INDAPAMIDE [Concomitant]
     Indication: HYPERTENSION
     Route: 048
     Dates: end: 20120511
  16. ETHYL ICOSAPENTATE [Concomitant]
     Indication: HYPERLIPIDAEMIA
     Route: 048
  17. HOKUNALIN TAPE [Concomitant]
     Indication: ASTHMA
     Route: 062
     Dates: start: 20120427, end: 20120427
  18. UNKNOWN MEDICATION [Concomitant]
     Indication: PAIN IN EXTREMITY
     Route: 048
     Dates: start: 20120430, end: 20120501

REACTIONS (2)
  - DECREASED APPETITE [None]
  - INFLAMMATION [None]
